FAERS Safety Report 11997692 (Version 1)
Quarter: 2016Q1

REPORT INFORMATION
  Report Type: Spontaneous
  Country: US (occurrence: US)
  Receive Date: 20160203
  Receipt Date: 20160203
  Transmission Date: 20160526
  Serious: Yes (Hospitalization)
  Sender: FDA-Public Use
  Company Number: GXBR2016US000583

PATIENT
  Sex: Female
  Weight: 79.37 kg

DRUGS (9)
  1. HYDROCODONE / IBUPROFEN [Concomitant]
     Active Substance: HYDROCODONE BITARTRATE\IBUPROFEN
     Indication: BACK PAIN
     Dosage: UNK DF, QID
     Route: 048
     Dates: start: 2014
  2. LISINOPRIL. [Concomitant]
     Active Substance: LISINOPRIL
     Indication: BLOOD PRESSURE MEASUREMENT
     Dosage: 10 MG, QD
     Route: 048
     Dates: start: 201509
  3. LEVOTHYROXINE. [Concomitant]
     Active Substance: LEVOTHYROXINE
     Indication: THYROID HORMONES DECREASED
     Dosage: UNK DF, UNK
     Route: 065
     Dates: start: 2011
  4. TIZANIDINE. [Concomitant]
     Active Substance: TIZANIDINE
     Indication: MUSCLE DISORDER
     Dosage: 6 MG, TID
     Route: 048
     Dates: start: 2014
  5. CHOLESTYRAMINE FOR ORAL SUSPENSION USP [Suspect]
     Active Substance: CHOLESTYRAMINE
     Indication: DIARRHOEA
     Dosage: 1 DF, TID - QID
     Route: 048
     Dates: start: 1993, end: 2015
  6. LYRICA [Concomitant]
     Active Substance: PREGABALIN
     Indication: PAIN
     Dosage: 75 MG, BID
     Route: 048
     Dates: start: 2015
  7. NADOLOL. [Concomitant]
     Active Substance: NADOLOL
     Indication: HYPERTENSION
     Dosage: 80 MG, QD
     Route: 048
     Dates: start: 2009
  8. BUSPIRONE [Concomitant]
     Active Substance: BUSPIRONE HYDROCHLORIDE
     Indication: ANXIETY
     Dosage: UNK DF, TID
     Dates: start: 2015
  9. VENLAFAXINE XR [Concomitant]
     Active Substance: VENLAFAXINE HYDROCHLORIDE
     Indication: DEPRESSION
     Dosage: UNK DF, UNK
     Route: 065
     Dates: start: 2015

REACTIONS (5)
  - Gastrointestinal pain [Not Recovered/Not Resolved]
  - Hepatic steatosis [Not Recovered/Not Resolved]
  - Liver induration [Recovering/Resolving]
  - Hepatic enzyme increased [Recovering/Resolving]
  - Hepatomegaly [Recovering/Resolving]
